FAERS Safety Report 7415671-5 (Version None)
Quarter: 2011Q2

REPORT INFORMATION
  Report Type: 
  Country: None (occurrence: None)
  Receive Date: 20110414
  Receipt Date: 20110413
  Transmission Date: 20111010
  Serious: Yes (Other)
  Sender: FDA-Public Use
  Company Number: US-MERCK-1104USA01830

PATIENT
  Age: 57 Year
  Sex: Female

DRUGS (3)
  1. JANUMET [Suspect]
     Route: 048
  2. METFORMIN [Concomitant]
     Route: 065
  3. ATENOLOL [Concomitant]
     Route: 065

REACTIONS (1)
  - CEREBROVASCULAR ACCIDENT [None]
